FAERS Safety Report 11831712 (Version 1)
Quarter: 2015Q4

REPORT INFORMATION
  Report Type: Spontaneous
  Country: US (occurrence: None)
  Receive Date: 20151211
  Receipt Date: 20151211
  Transmission Date: 20160305
  Serious: Yes (Disabling, Other)
  Sender: FDA-Public Use
  Company Number: None

PATIENT
  Age: 49 Year
  Sex: Male
  Weight: 57.61 kg

DRUGS (7)
  1. DEXAMETHASONE COMP UNIT [Suspect]
     Active Substance: DEXAMETHASONE
     Indication: PRODUCT USED FOR UNKNOWN INDICATION
  2. CENTRUM OVER 50 [Concomitant]
  3. XANAX [Concomitant]
     Active Substance: ALPRAZOLAM
  4. BACLOFEN. [Concomitant]
     Active Substance: BACLOFEN
  5. DEXIDRENE [Concomitant]
  6. PERCOCET [Concomitant]
     Active Substance: ACETAMINOPHEN\OXYCODONE HYDROCHLORIDE
  7. NUEROTIN [Concomitant]

REACTIONS (17)
  - Rhinorrhoea [None]
  - Memory impairment [None]
  - Dysstasia [None]
  - Hypoaesthesia [None]
  - General physical health deterioration [None]
  - Pain [None]
  - Faecal incontinence [None]
  - Visual impairment [None]
  - Loss of consciousness [None]
  - Gait disturbance [None]
  - Dyskinesia [None]
  - Posture abnormal [None]
  - Speech disorder [None]
  - Fear of disease [None]
  - Burning sensation [None]
  - Feeling abnormal [None]
  - Cognitive disorder [None]

NARRATIVE: CASE EVENT DATE: 20120926
